FAERS Safety Report 19194983 (Version 3)
Quarter: 2021Q3

REPORT INFORMATION
  Report Type: Report from Study
  Country: US (occurrence: US)
  Receive Date: 20210429
  Receipt Date: 20210707
  Transmission Date: 20211014
  Serious: Yes (Hospitalization, Other)
  Sender: FDA-Public Use
  Company Number: NVSC2021US086096

PATIENT
  Sex: Male

DRUGS (1)
  1. KESIMPTA [Suspect]
     Active Substance: OFATUMUMAB
     Indication: RELAPSING-REMITTING MULTIPLE SCLEROSIS
     Dosage: 20 MG/KG
     Route: 058
     Dates: start: 20210413

REACTIONS (6)
  - Acquired cardiac septal defect [Unknown]
  - Headache [Unknown]
  - Cerebrovascular accident [Unknown]
  - Amnesia [Unknown]
  - Multiple sclerosis [Unknown]
  - Oesophageal disorder [Unknown]
